FAERS Safety Report 4865387-4 (Version None)
Quarter: 2005Q4

REPORT INFORMATION
  Report Type: 
  Country: None (occurrence: None)
  Receive Date: 20051219
  Receipt Date: 20051215
  Transmission Date: 20060501
  Serious: Yes (Death, Life-Threatening, Hospitalization, Other)
  Sender: FDA-Public Use
  Company Number: 006093

PATIENT
  Age: 73 Year
  Sex: Male
  Weight: 98 kg

DRUGS (14)
  1. ZEBETA [Suspect]
     Dosage: 2.5 MG, ORAL
     Route: 048
     Dates: start: 20040626, end: 20040626
  2. AMIODARONE HCL [Suspect]
     Indication: ATRIAL FIBRILLATION
     Dosage: 1200 MG. SINGLE, INTRAVENOUS
     Route: 042
     Dates: start: 20040626, end: 20040626
  3. SERENASE DEKANOAT (HALOPERIDOL DECANOATE) [Concomitant]
  4. ANGIOMAX [Suspect]
     Indication: ATRIAL FIBRILLATION
     Dosage: SEE IMAGE
     Route: 042
     Dates: start: 20040616, end: 20040616
  5. ANGIOMAX [Suspect]
     Indication: ATRIAL FIBRILLATION
     Dosage: SEE IMAGE
     Route: 042
     Dates: start: 20040616, end: 20040618
  6. ATIVAN [Concomitant]
  7. NORVASC [Concomitant]
  8. SIMVASTATIN [Concomitant]
  9. TEMAZEPAM [Concomitant]
  10. ASPIRIN [Concomitant]
  11. RAMIPRIL [Concomitant]
  12. ENOXAPARIN SODIUM [Concomitant]
  13. CEFTRIAXONE [Concomitant]
  14. ANGIOMAX [Suspect]
     Dosage: 0.25 MG/KG, Q1HR, INTRAVENOUS
     Route: 042
     Dates: start: 20040616, end: 20040618

REACTIONS (8)
  - ATRIAL FIBRILLATION [None]
  - CARDIAC ARREST [None]
  - CARDIAC DISORDER [None]
  - CARDIOMEGALY [None]
  - CORONARY ARTERY STENOSIS [None]
  - DEPRESSED LEVEL OF CONSCIOUSNESS [None]
  - POST PROCEDURAL COMPLICATION [None]
  - VENTRICULAR FIBRILLATION [None]
